FAERS Safety Report 10503817 (Version 1)
Quarter: 2014Q4

REPORT INFORMATION
  Report Type: Spontaneous
  Country: US (occurrence: None)
  Receive Date: 20141006
  Receipt Date: 20141006
  Transmission Date: 20150528
  Serious: Yes (Hospitalization, Other)
  Sender: FDA-Public Use
  Company Number: ABR_01825_2014

PATIENT
  Sex: Female

DRUGS (1)
  1. EDARBI [Suspect]
     Active Substance: AZILSARTAN KAMEDOXOMIL
     Indication: HYPERTENSION
     Dates: end: 201407

REACTIONS (4)
  - Wrong technique in drug usage process [None]
  - Malaise [None]
  - Blood pressure decreased [None]
  - Feeling abnormal [None]
